FAERS Safety Report 17581602 (Version 1)
Quarter: 2020Q1

REPORT INFORMATION
  Report Type: Spontaneous
  Country: US (occurrence: US)
  Receive Date: 20200320
  Receipt Date: 20200320
  Transmission Date: 20200409
  Serious: Yes (Death, Life-Threatening, Hospitalization)
  Sender: FDA-Public Use
  Company Number: None

PATIENT
  Age: 66 Year
  Sex: Male

DRUGS (1)
  1. RITUXIMAB (RITUXIMAB 10MG/ML, VIL, 10ML) [Suspect]
     Active Substance: RITUXIMAB
     Indication: DIFFUSE LARGE B-CELL LYMPHOMA
     Route: 042
     Dates: start: 20180921, end: 20180921

REACTIONS (5)
  - Anaphylactic reaction [None]
  - Respiratory distress [None]
  - Infusion related reaction [None]
  - Rash maculo-papular [None]
  - Wheezing [None]

NARRATIVE: CASE EVENT DATE: 20180921
